FAERS Safety Report 9117276 (Version 1)
Quarter: 2013Q1

REPORT INFORMATION
  Report Type: Spontaneous
  Country: US (occurrence: US)
  Receive Date: 20130225
  Receipt Date: 20130225
  Transmission Date: 20140127
  Serious: Yes (Other)
  Sender: FDA-Public Use
  Company Number: US-JNJFOC-20130209120

PATIENT
  Sex: Female
  Weight: 90.72 kg

DRUGS (4)
  1. XARELTO [Suspect]
     Indication: CEREBROVASCULAR ACCIDENT PROPHYLAXIS
     Dosage: 20 MG TABLET WITH EVENING MEAL
     Route: 048
     Dates: start: 201301
  2. XARELTO [Suspect]
     Indication: ATRIAL FIBRILLATION
     Dosage: 20 MG TABLET WITH EVENING MEAL
     Route: 048
     Dates: start: 201301
  3. DILTIAZEM [Concomitant]
     Indication: HYPERTENSION
     Route: 048
  4. DIOVAN [Concomitant]
     Indication: HYPERTENSION
     Route: 048

REACTIONS (1)
  - Foot deformity [Not Recovered/Not Resolved]
